FAERS Safety Report 17946251 (Version 1)
Quarter: 2020Q2

REPORT INFORMATION
  Report Type: Spontaneous
  Country: US (occurrence: US)
  Receive Date: 20200625
  Receipt Date: 20200625
  Transmission Date: 20200714
  Serious: No
  Sender: FDA-Public Use
  Company Number: US-VIRTUS PHARMACEUTICALS, LLC-2020VTS00023

PATIENT
  Sex: Female

DRUGS (2)
  1. PROGESTERONE. [Suspect]
     Active Substance: PROGESTERONE
     Dosage: UNK
  2. PROGESTERONE. [Suspect]
     Active Substance: PROGESTERONE
     Dosage: UNK

REACTIONS (1)
  - Therapeutic product effect decreased [Not Recovered/Not Resolved]
